FAERS Safety Report 17771866 (Version 1)
Quarter: 2020Q2

REPORT INFORMATION
  Report Type: Report from Study
  Country: MY (occurrence: MY)
  Receive Date: 20200512
  Receipt Date: 20200512
  Transmission Date: 20200714
  Serious: Yes (Death, Hospitalization, Disabling)
  Sender: FDA-Public Use
  Company Number: MY-CELGENEUS-MYS-20180804268

PATIENT
  Age: 27 Year
  Sex: Male
  Weight: 51 kg

DRUGS (32)
  1. FOLATE [Concomitant]
     Active Substance: FOLATE SODIUM
     Indication: SUPPLEMENTATION THERAPY
     Dosage: 5 MILLIGRAM
     Route: 048
     Dates: start: 20090723, end: 20190105
  2. ALLOPURINOL. [Concomitant]
     Active Substance: ALLOPURINOL
     Indication: BLOOD URIC ACID INCREASED
     Route: 048
     Dates: start: 20181029
  3. LUSPATERCEPT. [Suspect]
     Active Substance: LUSPATERCEPT
     Dosage: 1.25 MILLIGRAM/KILOGRAM
     Route: 058
     Dates: start: 20180731, end: 20180731
  4. DEFERIPRONE [Suspect]
     Active Substance: DEFERIPRONE
     Dosage: 1500 MILLIGRAM
     Route: 065
     Dates: end: 20190105
  5. VANCOMYCIN [Concomitant]
     Active Substance: VANCOMYCIN
     Indication: INFECTION
     Dosage: 107.1429 MILLIGRAM
     Route: 041
     Dates: start: 20181030, end: 20181213
  6. KALIMATE [Concomitant]
     Active Substance: CALCIUM POLYSTYRENE SULFONATE
     Indication: HYPERKALAEMIA
     Dosage: 45 GRAM
     Route: 048
     Dates: start: 20181224, end: 20190105
  7. LEVOFLOXACIN. [Concomitant]
     Active Substance: LEVOFLOXACIN
     Indication: INFECTION
     Route: 048
     Dates: start: 20181210, end: 20181220
  8. CIPROFLOXACIN. [Concomitant]
     Active Substance: CIPROFLOXACIN
     Indication: PRODUCT USED FOR UNKNOWN INDICATION
     Dosage: 1 GRAM
     Route: 065
  9. TRAMADOL. [Concomitant]
     Active Substance: TRAMADOL
     Indication: MENISCUS INJURY
     Route: 065
     Dates: start: 2017
  10. RBC [Concomitant]
     Active Substance: HUMAN RED BLOOD CELL
     Indication: THALASSAEMIA BETA
     Route: 041
  11. FRUSEMIDE [Concomitant]
     Active Substance: FUROSEMIDE
     Indication: AZOTAEMIA
     Dosage: 40 MILLIGRAM
     Route: 041
     Dates: start: 20181029, end: 20181224
  12. MIST KCL [Concomitant]
     Indication: HYPOKALAEMIA
     Dosage: 45 MILLILITER
     Route: 048
     Dates: start: 20181116, end: 20181211
  13. ROCALTROL [Concomitant]
     Active Substance: CALCITRIOL
     Indication: OSTEOPENIA
     Dosage: .25 MILLIGRAM
     Route: 048
  14. PANTOPRAZOLE [Concomitant]
     Active Substance: PANTOPRAZOLE
     Dosage: 80 MILLIGRAM
     Route: 041
     Dates: start: 20181224, end: 20190105
  15. FRUSEMIDE [Concomitant]
     Active Substance: FUROSEMIDE
     Indication: DIALYSIS
  16. ACTRAPID [Concomitant]
     Active Substance: INSULIN HUMAN
     Indication: PRODUCT USED FOR UNKNOWN INDICATION
     Dosage: 10 IU (INTERNATIONAL UNIT)
     Route: 041
     Dates: start: 20181030, end: 20181224
  17. N-ACETYLCYSTEINE [Concomitant]
     Active Substance: ACETYLCYSTEINE
     Indication: PRODUCT USED FOR UNKNOWN INDICATION
     Dosage: 1200 MILLIGRAM
     Route: 048
     Dates: start: 20181208, end: 20181224
  18. LUSPATERCEPT. [Suspect]
     Active Substance: LUSPATERCEPT
     Indication: ANAEMIA OF CHRONIC DISEASE
     Dosage: 1 MILLIGRAM/KILOGRAM
     Route: 058
     Dates: start: 20170124, end: 20170124
  19. CALCIUM LACTATE [Concomitant]
     Active Substance: CALCIUM LACTATE
     Indication: OSTEOPENIA
     Dosage: 600 MILLIGRAM
     Route: 048
     Dates: start: 20090723
  20. TRAMADOL. [Concomitant]
     Active Substance: TRAMADOL
     Indication: PAIN
     Route: 041
     Dates: start: 20181029, end: 20190105
  21. KALIMATE [Concomitant]
     Active Substance: CALCIUM POLYSTYRENE SULFONATE
     Indication: HYPERPHOSPHATAEMIA
  22. HEPARIN [Concomitant]
     Active Substance: HEPARIN SODIUM
     Indication: THROMBOSIS PROPHYLAXIS
     Dosage: 10000 IU (INTERNATIONAL UNIT)
     Route: 058
     Dates: start: 20181203, end: 20181216
  23. DEFERIPRONE [Suspect]
     Active Substance: DEFERIPRONE
     Indication: CHELATION THERAPY
     Dosage: 4.5 GRAM
     Route: 065
     Dates: start: 20130613
  24. PARACETAMOL [Concomitant]
     Active Substance: ACETAMINOPHEN
     Indication: MENISCUS INJURY
     Dosage: 1 GRAM
     Route: 065
  25. NEUPOGEN [Concomitant]
     Active Substance: FILGRASTIM
     Indication: PRODUCT USED FOR UNKNOWN INDICATION
     Dosage: 300 MICROGRAM
     Route: 058
     Dates: start: 20180803, end: 20180803
  26. PREDNISOLONE. [Concomitant]
     Active Substance: PREDNISOLONE
     Indication: SYSTEMIC LUPUS ERYTHEMATOSUS
     Dosage: 20 MILLIGRAM
     Route: 065
  27. ZINC OXIDE. [Concomitant]
     Active Substance: ZINC OXIDE
     Indication: DECUBITUS ULCER
     Dosage: 100 GRAM
     Route: 061
     Dates: start: 20181219, end: 20190105
  28. SYRUP NYSTATIN [Concomitant]
     Indication: ORAL CANDIDIASIS
     Dosage: 500000 UNIT, 4 TIMES A DAY
     Route: 048
     Dates: start: 20181112, end: 20181121
  29. SYRUP LACTULOSE [Concomitant]
     Indication: CONSTIPATION
     Dosage: 45 MILLILITER
     Route: 048
     Dates: start: 20181102, end: 20181111
  30. ALLOPURINOL. [Concomitant]
     Active Substance: ALLOPURINOL
     Indication: PREMEDICATION
     Route: 048
     Dates: start: 20181125, end: 20190104
  31. PANTOPRAZOLE [Concomitant]
     Active Substance: PANTOPRAZOLE
     Indication: PROPHYLAXIS
     Dosage: 80 MILLIGRAM
     Route: 041
     Dates: start: 20181028, end: 20181030
  32. CALCIUM GLUCONATE. [Concomitant]
     Active Substance: CALCIUM GLUCONATE
     Indication: HYPOCALCAEMIA
     Dosage: 10 MILLILITER
     Route: 041
     Dates: start: 20181107, end: 20181110

REACTIONS (6)
  - Neutropenic sepsis [Recovered/Resolved]
  - Acute erythroid leukaemia [Fatal]
  - Thrombocytopenia [Not Recovered/Not Resolved]
  - Pancytopenia [Not Recovered/Not Resolved]
  - Neutropenic sepsis [Recovered/Resolved]
  - Splenic abscess [Recovered/Resolved]

NARRATIVE: CASE EVENT DATE: 20180718
